FAERS Safety Report 4285230-4 (Version None)
Quarter: 2004Q1

REPORT INFORMATION
  Report Type: 
  Country: None (occurrence: None)
  Receive Date: 20040202
  Receipt Date: 20040119
  Transmission Date: 20041129
  Serious: Yes (Death, Hospitalization)
  Sender: FDA-Public Use
  Company Number: 04P-083-0247673-00

PATIENT
  Age: 63 Year
  Sex: Male
  Weight: 65 kg

DRUGS (9)
  1. HUMIRA [Suspect]
     Indication: RHEUMATOID ARTHRITIS
     Dosage: 40 MG, 1 IN 2 WK, SUBCUTANEOUS
     Route: 058
     Dates: start: 20030702, end: 20031001
  2. METHOTREXATE [Concomitant]
  3. LEFLUNOMIDE [Concomitant]
  4. METHYLPREDNISONE [Concomitant]
  5. AMLODIPINE BESYLATE [Concomitant]
  6. FOSINOPRIL SODIUM [Concomitant]
  7. OMEPRAZOLE [Concomitant]
  8. LORAZEPAM [Concomitant]
  9. DEVEGIL [Concomitant]

REACTIONS (2)
  - POST PROCEDURAL COMPLICATION [None]
  - SPONDYLOLISTHESIS ACQUIRED [None]
